FAERS Safety Report 5799889-3 (Version None)
Quarter: 2008Q3

REPORT INFORMATION
  Report Type: 
  Country: None (occurrence: None)
  Receive Date: 20080703
  Receipt Date: 20080630
  Transmission Date: 20090109
  Serious: Yes (Other)
  Sender: FDA-Public Use
  Company Number: US-BAYER-200810383BCC

PATIENT
  Sex: Female

DRUGS (4)
  1. ASPIRIN [Suspect]
     Indication: DRUG USE FOR UNKNOWN INDICATION
  2. ACTONEL [Suspect]
  3. SEVEN COAGULATION FACTOR [Suspect]
  4. TOPROL-XL [Suspect]

REACTIONS (1)
  - GASTROINTESTINAL HAEMORRHAGE [None]
